FAERS Safety Report 21122800 (Version 1)
Quarter: 2022Q3

REPORT INFORMATION
  Report Type: Spontaneous
  Country: US (occurrence: US)
  Receive Date: 20220723
  Receipt Date: 20220723
  Transmission Date: 20221027
  Serious: No
  Sender: FDA-Public Use
  Company Number: US-JNJFOC-20220709863

PATIENT
  Age: 4 Decade
  Sex: Female

DRUGS (1)
  1. MENS ROGAINE EXTRA STRENGTH [Suspect]
     Active Substance: MINOXIDIL
     Indication: Alopecia
     Dosage: HALF A CAPFUL
     Route: 061
     Dates: start: 202202, end: 2022

REACTIONS (4)
  - Sensation of blood flow [Recovered/Resolved]
  - Dizziness [Recovered/Resolved]
  - Product use issue [Unknown]
  - Intentional product misuse [Unknown]

NARRATIVE: CASE EVENT DATE: 20220201
